FAERS Safety Report 6801686-4 (Version None)
Quarter: 2010Q2

REPORT INFORMATION
  Report Type: 
  Country: None (occurrence: None)
  Receive Date: 20100629
  Receipt Date: 20100622
  Transmission Date: 20101027
  Serious: Yes (Death)
  Sender: FDA-Public Use
  Company Number: JP-BRISTOL-MYERS SQUIBB COMPANY-15158421

PATIENT
  Age: 41 Year
  Sex: Female

DRUGS (5)
  1. ABILIFY [Suspect]
     Indication: SCHIZOPHRENIA
     Route: 048
     Dates: start: 20090413, end: 20090901
  2. HIRNAMIN [Concomitant]
     Dates: start: 20090515, end: 20090807
  3. RISPERDAL [Concomitant]
     Dates: start: 20090713
  4. SILECE [Concomitant]
     Dates: start: 20090713
  5. CONTOMIN [Concomitant]
     Dates: start: 20090807

REACTIONS (1)
  - CARDIAC FAILURE ACUTE [None]
